FAERS Safety Report 5493118-6 (Version None)
Quarter: 2007Q4

REPORT INFORMATION
  Report Type: 
  Country: None (occurrence: None)
  Receive Date: 20071022
  Receipt Date: 20071022
  Transmission Date: 20080405
  Serious: No
  Sender: FDA-Public Use
  Company Number: None

PATIENT
  Sex: Male
  Weight: 67.1 kg

DRUGS (2)
  1. CISPLATIN [Suspect]
     Dosage: 180 MG
     Dates: end: 20071016
  2. ERBITUX [Suspect]
     Dosage: 450 MG
     Dates: end: 20071016

REACTIONS (6)
  - ABDOMINAL PAIN [None]
  - ASTHENIA [None]
  - DEHYDRATION [None]
  - HYPOKALAEMIA [None]
  - NAUSEA [None]
  - VOMITING [None]
